FAERS Safety Report 8122448-4 (Version None)
Quarter: 2012Q1

REPORT INFORMATION
  Report Type: 
  Country: None (occurrence: None)
  Receive Date: 20120208
  Receipt Date: 20120127
  Transmission Date: 20120608
  Serious: Yes (Hospitalization, Other)
  Sender: FDA-Public Use
  Company Number: US-ELI_LILLY_AND_COMPANY-US201103008093

PATIENT
  Sex: Female

DRUGS (16)
  1. FORTEO [Suspect]
     Dosage: 20 UG, QD
     Route: 065
  2. LISINOPRIL [Concomitant]
     Dosage: 10 MG, QD
     Route: 065
  3. IMODIUM [Concomitant]
     Dosage: UNK, UNKNOWN
     Route: 065
  4. CINNAMON [Concomitant]
     Dosage: UNK, UNKNOWN
     Route: 065
  5. VITAMIN B COMPLEX CAP [Concomitant]
     Dosage: UNK, UNKNOWN
     Route: 065
  6. PREDNISONE [Concomitant]
     Dosage: 5 MG, QD
     Route: 065
  7. PLAQUENIL [Concomitant]
     Dosage: 200 MG, QD
     Route: 048
  8. FOLIC ACID [Concomitant]
     Dosage: UNK, UNKNOWN
     Route: 065
  9. FORTEO [Suspect]
     Dosage: 20 UG, QD
     Route: 065
  10. OMEPRAZOLE [Concomitant]
     Dosage: UNK, QD
     Route: 065
  11. LORTAB [Concomitant]
     Dosage: UNK, UNKNOWN
     Route: 065
  12. IBUPROFEN [Concomitant]
     Dosage: UNK, UNKNOWN
     Route: 065
  13. VITAMIN D [Concomitant]
     Dosage: UNK, UNKNOWN
     Route: 065
  14. FORTEO [Suspect]
     Indication: OSTEOPOROSIS
     Dosage: 20 UG, QD
     Route: 065
     Dates: start: 20110302
  15. ASACOL [Concomitant]
     Dosage: UNK, UNKNOWN
     Route: 065
  16. SPIRONOLACTONE [Concomitant]
     Dosage: UNK, QD
     Route: 048

REACTIONS (12)
  - POLYP COLORECTAL [None]
  - ERYTHEMA [None]
  - PAIN IN JAW [None]
  - COUGH [None]
  - DIARRHOEA [None]
  - COLITIS MICROSCOPIC [None]
  - DYSGEUSIA [None]
  - BONE EROSION [None]
  - TENDON INJURY [None]
  - SYSTEMIC LUPUS ERYTHEMATOSUS [None]
  - RASH [None]
  - DIZZINESS [None]
